FAERS Safety Report 9792093 (Version 2)
Quarter: 2014Q1

REPORT INFORMATION
  Report Type: Spontaneous
  Country: US (occurrence: US)
  Receive Date: 20140102
  Receipt Date: 20140318
  Transmission Date: 20141002
  Serious: Yes (Death)
  Sender: FDA-Public Use
  Company Number: US-INCYTE CORPORATION-2013IN003118

PATIENT
  Age: 74 Year
  Sex: Male
  Weight: 81.6 kg

DRUGS (2)
  1. JAKAFI [Suspect]
     Indication: MYELOFIBROSIS
     Dosage: 10 MG, BID
     Dates: start: 2011, end: 2013
  2. JAKAFI [Suspect]
     Dosage: 3 5 MG TABLETS  BID
     Route: 048
     Dates: start: 201311, end: 2013

REACTIONS (2)
  - Disease progression [Fatal]
  - Hypovolaemia [Fatal]
